FAERS Safety Report 6273156-6 (Version None)
Quarter: 2009Q3

REPORT INFORMATION
  Report Type: 
  Country: None (occurrence: None)
  Receive Date: 20090720
  Receipt Date: 20090713
  Transmission Date: 20100115
  Serious: No
  Sender: FDA-Public Use
  Company Number: US-JNJFOC-20090703879

PATIENT
  Sex: Female
  Weight: 79.38 kg

DRUGS (3)
  1. FENTANYL TRANSDERMAL SYSTEM [Suspect]
     Indication: ABDOMINAL PAIN
     Route: 062
  2. HYDROCORTISONE [Suspect]
     Indication: ADRENAL DISORDER
     Route: 065
  3. UNKNOWN MEDICATION [Concomitant]
     Route: 065

REACTIONS (6)
  - ACNE [None]
  - APPLICATION SITE PERSPIRATION [None]
  - CONTUSION [None]
  - DEVICE ADHESION ISSUE [None]
  - SKIN STRIAE [None]
  - WRONG TECHNIQUE IN DRUG USAGE PROCESS [None]
